FAERS Safety Report 13406938 (Version 2)
Quarter: 2017Q2

REPORT INFORMATION
  Report Type: Report from Study
  Country: DE (occurrence: DE)
  Receive Date: 20170405
  Receipt Date: 20170407
  Transmission Date: 20170830
  Serious: No
  Sender: FDA-Public Use
  Company Number: DE-JNJFOC-20170402389

PATIENT
  Age: 66 Year
  Sex: Male

DRUGS (1)
  1. STELARA [Suspect]
     Active Substance: USTEKINUMAB
     Indication: PSORIASIS
     Route: 058
     Dates: start: 20160718, end: 20170130

REACTIONS (7)
  - Staphylococcal infection [Not Recovered/Not Resolved]
  - Dental cyst [Recovered/Resolved]
  - Gingivitis [Recovered/Resolved]
  - Constipation [Recovered/Resolved]
  - Dental care [Recovered/Resolved]
  - Tooth infection [Recovered/Resolved]
  - Breast swelling [Recovered/Resolved]

NARRATIVE: CASE EVENT DATE: 201607
